FAERS Safety Report 7506873-8 (Version None)
Quarter: 2011Q2

REPORT INFORMATION
  Report Type: 
  Country: None (occurrence: None)
  Receive Date: 20110526
  Receipt Date: 20110517
  Transmission Date: 20111010
  Serious: Yes (Other)
  Sender: FDA-Public Use
  Company Number: B0721962A

PATIENT
  Age: 60 Year
  Sex: Female

DRUGS (5)
  1. EFAVIRENZ [Concomitant]
     Route: 065
  2. NELFINAVIR MESYLATE [Suspect]
     Indication: HIV INFECTION
     Route: 065
     Dates: start: 19990101
  3. LAMIVUDINE [Suspect]
     Indication: HIV INFECTION
     Route: 065
     Dates: start: 19990101
  4. STAVUDINE [Suspect]
     Indication: HIV INFECTION
     Route: 065
     Dates: start: 19990101
  5. TENOFOVIR DISOPROXIL FUMARATE [Concomitant]
     Route: 065

REACTIONS (8)
  - LIPODYSTROPHY ACQUIRED [None]
  - DYSPNOEA [None]
  - COUGH [None]
  - IMMUNE RECONSTITUTION SYNDROME [None]
  - PULMONARY SARCOIDOSIS [None]
  - LUNG INFILTRATION [None]
  - WHEEZING [None]
  - GRANULOMA [None]
